FAERS Safety Report 5077621-9 (Version None)
Quarter: 2006Q3

REPORT INFORMATION
  Report Type: 
  Country: None (occurrence: None)
  Receive Date: 20060810
  Receipt Date: 20060501
  Transmission Date: 20061208
  Serious: No
  Sender: FDA-Public Use
  Company Number: US-GLAXOSMITHKLINE-A0603867A

PATIENT
  Age: 56 Year
  Sex: Female

DRUGS (10)
  1. PAXIL [Suspect]
     Indication: DEPRESSION
     Route: 048
  2. WELLBUTRIN XL [Suspect]
     Dosage: 150MG PER DAY
     Route: 048
  3. ALDACTONE [Concomitant]
  4. ENTEX CAP [Concomitant]
  5. ESTROGENS SOL/INJ [Concomitant]
  6. ASCORBIC ACID [Concomitant]
  7. VITAMIN D [Concomitant]
  8. FLAX SEED OIL [Concomitant]
  9. PRIMROSE OIL [Concomitant]
  10. CALCIUM GLUCONATE [Concomitant]

REACTIONS (7)
  - DRUG INEFFECTIVE [None]
  - NAUSEA [None]
  - PRURITUS [None]
  - SOMNOLENCE [None]
  - SPEECH DISORDER [None]
  - TREMOR [None]
  - WEIGHT INCREASED [None]
